FAERS Safety Report 12319231 (Version 1)
Quarter: 2016Q2

REPORT INFORMATION
  Report Type: Spontaneous
  Country: US (occurrence: US)
  Receive Date: 20160429
  Receipt Date: 20160429
  Transmission Date: 20160815
  Serious: No
  Sender: FDA-Public Use
  Company Number: US-BIOGEN-2016BI00224435

PATIENT

DRUGS (1)
  1. AVONEX [Suspect]
     Active Substance: INTERFERON BETA-1A
     Indication: MULTIPLE SCLEROSIS
     Route: 065

REACTIONS (7)
  - Fear of crowded places [Unknown]
  - Confusional state [Unknown]
  - Psychiatric symptom [Unknown]
  - Frustration tolerance decreased [Unknown]
  - General symptom [Unknown]
  - Agitation [Unknown]
  - Distractibility [Unknown]
